FAERS Safety Report 20796940 (Version 3)
Quarter: 2022Q2

REPORT INFORMATION
  Report Type: Report from Study
  Country: US (occurrence: None)
  Receive Date: 20220506
  Receipt Date: 20220530
  Transmission Date: 20220721
  Serious: Yes (Hospitalization)
  Sender: FDA-Public Use
  Company Number: US-ROCHE-3086937

PATIENT
  Age: 62 Year
  Sex: Male
  Weight: 84.5 kg

DRUGS (3)
  1. MOSUNETUZUMAB [Suspect]
     Active Substance: MOSUNETUZUMAB
     Indication: Non-Hodgkin^s lymphoma
     Dosage: ON 21/APR/2022, HE RECEIVED THE MOST RECENT DOSE OF MOSUNETUZUMAB (45 MG) PRIOR TO SAE ONSET
     Route: 058
     Dates: start: 20220414
  2. POLATUZUMAB VEDOTIN [Suspect]
     Active Substance: POLATUZUMAB VEDOTIN
     Indication: Non-Hodgkin^s lymphoma
     Dosage: ON 14/APR/2022, HE RECEIVED THE MOST RECENT DOSE OF POLATUZUMAB VEDOTIN (152 MG) PRIOR TO SAE ONSET
     Route: 042
     Dates: start: 20220414
  3. CALQUENCE [Concomitant]
     Active Substance: ACALABRUTINIB
     Dates: start: 201807

REACTIONS (1)
  - Febrile neutropenia [Recovered/Resolved]

NARRATIVE: CASE EVENT DATE: 20220423
